FAERS Safety Report 8802587 (Version 4)
Quarter: 2013Q1

REPORT INFORMATION
  Report Type: Report from Study
  Country: US (occurrence: US)
  Receive Date: 20120921
  Receipt Date: 20130115
  Transmission Date: 20140127
  Serious: Yes (Hospitalization)
  Sender: FDA-Public Use
  Company Number: US-ABBOTT-12P-163-0972229-00

PATIENT
  Age: 73 Year
  Sex: Male
  Weight: 65.83 kg

DRUGS (21)
  1. HUMIRA [Suspect]
     Indication: PSORIASIS
     Route: 058
     Dates: start: 20120306
  2. TACLONEX [Concomitant]
     Indication: PSORIASIS
     Dates: start: 20060918
  3. CLOBEX [Concomitant]
     Indication: PSORIASIS
     Dates: start: 20080903
  4. VECTICAL [Concomitant]
     Indication: PSORIASIS
     Dosage: MCG/MG
     Dates: start: 20090605
  5. LOCOID [Concomitant]
     Indication: PSORIASIS
     Dates: start: 20090119
  6. DOVONEX [Concomitant]
     Indication: PSORIASIS
     Dates: start: 20110108
  7. LIDEX [Concomitant]
     Indication: PSORIASIS
     Dates: start: 20110108
  8. PROTONIX [Concomitant]
     Indication: GASTROOESOPHAGEAL REFLUX DISEASE
     Dates: start: 2008
  9. IMDUR [Concomitant]
     Indication: ANGINA PECTORIS
     Dates: start: 20090403
  10. LIPITOR [Concomitant]
     Indication: BLOOD CHOLESTEROL INCREASED
     Dates: start: 2009
  11. PLAVIX [Concomitant]
     Indication: CEREBROVASCULAR ACCIDENT
     Dates: start: 20030119, end: 20120818
  12. PLAVIX [Concomitant]
     Dates: start: 201208
  13. HYDROCHLOROTHIAZIDE [Concomitant]
     Indication: HYPERTENSION
     Dates: start: 2009
  14. ATENOLOL [Concomitant]
     Indication: HYPERTENSION
     Dates: start: 2009
  15. NIFEDIPINE [Concomitant]
     Indication: HYPERTENSION
     Dates: start: 2009
  16. BENICAR [Concomitant]
     Indication: HYPERTENSION
     Dates: start: 2009
  17. ASPIRIN [Concomitant]
     Indication: CEREBROVASCULAR ACCIDENT
     Dates: start: 20000108, end: 20120818
  18. ASPIRIN [Concomitant]
     Dates: start: 201208
  19. LOCDID [Concomitant]
     Indication: PSORIASIS
     Dates: start: 20090119
  20. DOVONEX [Concomitant]
     Indication: PSORIASIS
     Dates: start: 20110108
  21. LIDEX [Concomitant]
     Indication: PSORIASIS
     Dates: start: 20110108

REACTIONS (3)
  - Gastritis haemorrhagic [Recovered/Resolved]
  - Colitis [Recovered/Resolved]
  - Anaemia [Recovered/Resolved]
